FAERS Safety Report 10231786 (Version 2)
Quarter: 2014Q2

REPORT INFORMATION
  Report Type: Spontaneous
  Country: DE (occurrence: DE)
  Receive Date: 20140612
  Receipt Date: 20140625
  Transmission Date: 20141212
  Serious: Yes (Hospitalization)
  Sender: FDA-Public Use
  Company Number: DE-ROCHE-1414035

PATIENT
  Age: 53 Year
  Sex: Male
  Weight: 77 kg

DRUGS (7)
  1. MABTHERA [Suspect]
     Indication: CHRONIC LYMPHOCYTIC LEUKAEMIA
     Route: 042
     Dates: start: 20140512, end: 20140617
  2. FLUDARA [Suspect]
     Indication: CHRONIC LYMPHOCYTIC LEUKAEMIA
     Route: 042
     Dates: start: 20140513, end: 20140617
  3. CYCLOPHOSPHAMID [Suspect]
     Indication: CHRONIC LYMPHOCYTIC LEUKAEMIA
     Route: 042
     Dates: start: 20140513, end: 20140617
  4. ONDANSETRON [Concomitant]
     Indication: PROPHYLAXIS
     Route: 048
     Dates: start: 20140513
  5. RANITIDIN [Concomitant]
     Indication: PROPHYLAXIS
     Route: 042
     Dates: start: 20140512
  6. FENISTIL (GERMANY) [Concomitant]
     Indication: PROPHYLAXIS
     Route: 042
     Dates: start: 20140512
  7. DEXAMETHASON [Concomitant]
     Indication: PROPHYLAXIS
     Route: 042
     Dates: start: 20140512

REACTIONS (1)
  - Pulmonary toxicity [Recovering/Resolving]
